FAERS Safety Report 18462864 (Version 1)
Quarter: 2020Q4

REPORT INFORMATION
  Report Type: Not Available
  Country: None (occurrence: None)
  Receive Date: 20201104
  Receipt Date: 20201104
  Transmission Date: 20210114
  Serious: Yes (Hospitalization, Other)
  Sender: FDA-Public Use
  Company Number: US-AKORN INC.-155189

PATIENT
  Age: 53 Year
  Sex: Male
  Weight: 63 kg

DRUGS (1)
  1. FENTANYL CITRATE INJECTION CII [Suspect]
     Active Substance: FENTANYL CITRATE

REACTIONS (6)
  - Hypoxia [Recovered/Resolved]
  - Ileus [Not Recovered/Not Resolved]
  - Bradycardia [Recovered/Resolved]
  - Hypotension [Recovered/Resolved]
  - Hypotension [Recovered/Resolved]
  - Laparotomy [Recovered/Resolved]

NARRATIVE: CASE EVENT DATE: 20200906
